FAERS Safety Report 12648846 (Version 4)
Quarter: 2016Q4

REPORT INFORMATION
  Report Type: Spontaneous
  Country: US (occurrence: US)
  Receive Date: 20160812
  Receipt Date: 20161221
  Transmission Date: 20170207
  Serious: No
  Sender: FDA-Public Use
  Company Number: US-PFIZER INC-2016384580

PATIENT
  Age: 61 Year
  Sex: Female
  Weight: 105 kg

DRUGS (11)
  1. DEXTROSE. [Suspect]
     Active Substance: DEXTROSE
     Dosage: 100CC OF 50% DEXTROSE
     Route: 014
     Dates: start: 20160809
  2. LIDOCAINE HCL [Suspect]
     Active Substance: LIDOCAINE HYDROCHLORIDE
     Dosage: UNK (R KNEE)
     Route: 014
     Dates: start: 20160609
  3. DEXTROSE. [Suspect]
     Active Substance: DEXTROSE
     Indication: ARTHRALGIA
     Dosage: 100CC OF 50% DEXTROSE
     Route: 014
     Dates: start: 20160308
  4. LIDOCAINE HCL [Suspect]
     Active Substance: LIDOCAINE HYDROCHLORIDE
     Indication: PROLIFERATIVE INJECTION THERAPY
     Dosage: UNK (R KNEE)
     Route: 014
     Dates: start: 20160412
  5. DEXTROSE. [Suspect]
     Active Substance: DEXTROSE
     Dosage: 100CC OF 50% DEXTROSE
     Route: 014
     Dates: start: 20160503
  6. LIDOCAINE HCL [Suspect]
     Active Substance: LIDOCAINE HYDROCHLORIDE
     Dosage: UNK (R KNEE)
     Route: 014
     Dates: start: 20160503
  7. LIDOCAINE HCL [Suspect]
     Active Substance: LIDOCAINE HYDROCHLORIDE
     Dosage: UNK (R KNEE)
     Route: 014
     Dates: start: 20160809
  8. DEXTROSE. [Suspect]
     Active Substance: DEXTROSE
     Dosage: 100CC OF 50% DEXTROSE
     Route: 014
     Dates: start: 20160609
  9. DEXTROSE. [Suspect]
     Active Substance: DEXTROSE
     Indication: PROLIFERATIVE INJECTION THERAPY
     Dosage: 100CC OF 50% DEXTROSE
     Route: 014
     Dates: start: 20160412
  10. LIDOCAINE HCL [Suspect]
     Active Substance: LIDOCAINE HYDROCHLORIDE
     Indication: ARTHRALGIA
     Dosage: UNK (R KNEE)
     Route: 014
     Dates: start: 20160308
  11. LIDOCAINE HCL [Suspect]
     Active Substance: LIDOCAINE HYDROCHLORIDE
     Dosage: UNK (R KNEE)
     Route: 014

REACTIONS (5)
  - Injection site swelling [Not Recovered/Not Resolved]
  - Pain [Unknown]
  - Injection site pain [Not Recovered/Not Resolved]
  - Condition aggravated [Unknown]
  - Product use issue [Unknown]

NARRATIVE: CASE EVENT DATE: 20160809
